FAERS Safety Report 6685189-6 (Version None)
Quarter: 2010Q2

REPORT INFORMATION
  Report Type: 
  Country: None (occurrence: None)
  Receive Date: 20100416
  Receipt Date: 20100409
  Transmission Date: 20101027
  Serious: Yes (Death)
  Sender: FDA-Public Use
  Company Number: BR-ROCHE-696662

PATIENT
  Age: 23 Year
  Sex: Female

DRUGS (1)
  1. TAMIFLU [Suspect]
     Dosage: START DATE AND STOP DATE- 2010
     Route: 065

REACTIONS (2)
  - INFLUENZA [None]
  - RESPIRATORY FAILURE [None]
